FAERS Safety Report 12290516 (Version 3)
Quarter: 2016Q2

REPORT INFORMATION
  Report Type: Report from Study
  Country: US (occurrence: US)
  Receive Date: 20160421
  Receipt Date: 20160428
  Transmission Date: 20160815
  Serious: Yes (Hospitalization, Disabling, Other)
  Sender: FDA-Public Use
  Company Number: PHEH2016US009665

PATIENT
  Age: 69 Year
  Sex: Female
  Weight: 33.11 kg

DRUGS (11)
  1. ALPRAZOLAM. [Concomitant]
     Active Substance: ALPRAZOLAM
     Indication: ANXIETY
     Dosage: 0.5 MG, QD
     Route: 048
     Dates: start: 2015
  2. DILTIAZEM [Concomitant]
     Active Substance: DILTIAZEM
     Indication: ATRIAL FIBRILLATION
  3. IPRATROPIUM [Concomitant]
     Active Substance: IPRATROPIUM
     Indication: CHRONIC OBSTRUCTIVE PULMONARY DISEASE
     Dosage: 4 DF, QD
     Route: 055
  4. LEVALBUTEROL//LEVOSALBUTAMOL [Concomitant]
     Indication: CHRONIC OBSTRUCTIVE PULMONARY DISEASE
     Dosage: 4 DF, QD
     Route: 055
  5. DILTIAZEM [Concomitant]
     Active Substance: DILTIAZEM
     Indication: BRONCHITIS
     Dosage: UNK UNK, QD (180, UNITS NOT REPORTED)
     Route: 048
  6. PREDNISONE. [Suspect]
     Active Substance: PREDNISONE
     Indication: CHRONIC OBSTRUCTIVE PULMONARY DISEASE
     Dosage: 20 MG, QD
     Route: 048
     Dates: start: 201502
  7. SYMBICORT [Concomitant]
     Active Substance: BUDESONIDE\FORMOTEROL FUMARATE DIHYDRATE
     Indication: CHRONIC OBSTRUCTIVE PULMONARY DISEASE
     Dosage: 2 DF, BID (2 PUFF)
     Route: 055
  8. PREDNISONE. [Suspect]
     Active Substance: PREDNISONE
     Indication: PNEUMONIA
  9. ESCITALOPRAM [Concomitant]
     Active Substance: ESCITALOPRAM OXALATE
     Indication: ANXIETY
     Dosage: 10 MG, QD
     Route: 048
  10. FUROSEMIDE. [Concomitant]
     Active Substance: FUROSEMIDE
     Indication: OEDEMA PERIPHERAL
     Dosage: 20 MG, QD
     Route: 048
     Dates: start: 201502
  11. TOBI [Suspect]
     Active Substance: TOBRAMYCIN
     Indication: PNEUMONIA
     Dosage: 2 DF, QD
     Route: 055
     Dates: start: 201603

REACTIONS (9)
  - Dyspnoea [Recovering/Resolving]
  - Respiratory distress [Unknown]
  - Bronchitis [Unknown]
  - Pneumonia [Unknown]
  - Wheezing [Recovering/Resolving]
  - Oedema peripheral [Recovering/Resolving]
  - Chronic obstructive pulmonary disease [Unknown]
  - Crepitations [Unknown]
  - Product use issue [Unknown]

NARRATIVE: CASE EVENT DATE: 20160318
